FAERS Safety Report 22262972 (Version 1)
Quarter: 2023Q2

REPORT INFORMATION
  Report Type: Report from Study
  Country: CA (occurrence: CA)
  Receive Date: 20230428
  Receipt Date: 20230428
  Transmission Date: 20230721
  Serious: Yes (Hospitalization, Other)
  Sender: FDA-Public Use
  Company Number: CA-002147023-NVSC2022CA154525

PATIENT
  Age: 73 Year
  Sex: Female

DRUGS (3)
  1. COSENTYX [Suspect]
     Active Substance: SECUKINUMAB
     Indication: Psoriasis
     Dosage: 300 MG, QMO
     Route: 058
     Dates: start: 20220628
  2. COSENTYX [Suspect]
     Active Substance: SECUKINUMAB
     Dosage: 300 MG, QMO
     Route: 058
     Dates: start: 20230211
  3. HYDRASENSE [Concomitant]
     Indication: Product used for unknown indication
     Dosage: UNK, UNKNOWN
     Route: 065

REACTIONS (10)
  - Breast cancer [Unknown]
  - Nasopharyngitis [Unknown]
  - Pharyngeal paraesthesia [Recovered/Resolved]
  - Asthenia [Unknown]
  - Cough [Recovered/Resolved]
  - Headache [Unknown]
  - Pain [Unknown]
  - Nasal congestion [Recovered/Resolved]
  - Fatigue [Unknown]
  - Cough [Unknown]

NARRATIVE: CASE EVENT DATE: 20220703
